FAERS Safety Report 19841259 (Version 2)
Quarter: 2021Q3

REPORT INFORMATION
  Report Type: Report from Study
  Country: FR (occurrence: FR)
  Receive Date: 20210915
  Receipt Date: 20210928
  Transmission Date: 20211014
  Serious: Yes (Other)
  Sender: FDA-Public Use
  Company Number: NVSC2021FR206881

PATIENT
  Age: 53 Year
  Sex: Male
  Weight: 73 kg

DRUGS (1)
  1. NELARABINE [Suspect]
     Active Substance: NELARABINE
     Indication: ACUTE LYMPHOCYTIC LEUKAEMIA
     Dosage: 2800 MG, QD
     Route: 042
     Dates: start: 20200103

REACTIONS (6)
  - Septic arthritis staphylococcal [Recovered/Resolved]
  - Pyrexia [Recovered/Resolved]
  - Psoas abscess [Recovering/Resolving]
  - Arthritis [Recovering/Resolving]
  - Osteitis [Recovering/Resolving]
  - Staphylococcal infection [Recovering/Resolving]

NARRATIVE: CASE EVENT DATE: 20200107
